FAERS Safety Report 21099369 (Version 2)
Quarter: 2022Q3

REPORT INFORMATION
  Report Type: Spontaneous
  Country: GB (occurrence: GB)
  Receive Date: 20220719
  Receipt Date: 20220722
  Transmission Date: 20221026
  Serious: Yes (Other)
  Sender: FDA-Public Use
  Company Number: GB-MHRA-MED-202205041650487710-26NHH

PATIENT
  Age: 64 Year
  Sex: Male
  Weight: 79 kg

DRUGS (4)
  1. PAXLOVID [Suspect]
     Active Substance: NIRMATRELVIR\RITONAVIR
     Indication: COVID-19 treatment
     Dosage: UNK
     Dates: start: 20220426, end: 20220502
  2. RIFAXIMIN [Concomitant]
     Active Substance: RIFAXIMIN
     Indication: Pain
     Dosage: UNK
     Dates: start: 20210401
  3. RIFAXIMIN [Concomitant]
     Active Substance: RIFAXIMIN
     Indication: Pain
     Dosage: UNK
     Dates: start: 20210401
  4. OMEPRAZOLE [Concomitant]
     Active Substance: OMEPRAZOLE
     Indication: Pain
     Dosage: UNK
     Dates: start: 20210401

REACTIONS (2)
  - Diarrhoea [Recovered/Resolved]
  - Product use issue [Unknown]

NARRATIVE: CASE EVENT DATE: 20220429
